FAERS Safety Report 15977325 (Version 1)
Quarter: 2019Q1

REPORT INFORMATION
  Report Type: Spontaneous
  Country: US (occurrence: US)
  Receive Date: 20190218
  Receipt Date: 20190218
  Transmission Date: 20190418
  Serious: No
  Sender: FDA-Public Use
  Company Number: US-SUNOVION-2019SUN000423

PATIENT
  Age: 59 Year
  Weight: 97.05 kg

DRUGS (9)
  1. ALBUTEROL SULFATE. [Concomitant]
     Active Substance: ALBUTEROL SULFATE
     Dosage: 2.5 MG/3ML 0.083% NEBULIZATION SOLUTION 3 ML AS NEEDED INHALATION TID
     Route: 055
  2. TRELEGY ELLIPTA [Concomitant]
     Active Substance: FLUTICASONE FUROATE\UMECLIDINIUM BROMIDE\VILANTEROL TRIFENATATE
     Dosage: 100-62.5-25 MCG/INH, 1 PUFF INHALATION QD
     Route: 055
  3. PROAIR HFA [Concomitant]
     Active Substance: ALBUTEROL SULFATE
     Indication: DYSPNOEA
     Dosage: 108 (90 BASE) MGC/ACT 2 PUFFS AEROSOL SOLUTION AS NEEDED EVERY 4 HOURS
     Route: 055
  4. LONHALA MAGNAIR [Suspect]
     Active Substance: GLYCOPYRROLATE
     Dosage: UNK
     Route: 055
  5. BREO ELLIPTA [Concomitant]
     Active Substance: FLUTICASONE FUROATE\VILANTEROL TRIFENATATE
     Dosage: 200-25 MCG/INH 1 PUFF INHALATION, QD
     Route: 055
  6. METHYLPREDNISOLONE ACETATE. [Concomitant]
     Active Substance: METHYLPREDNISOLONE ACETATE
     Dosage: DISCONTINUED THERAPY PACK 4 MG AS DIRECTED
     Route: 048
  7. INCRUSE ELLIPTA [Concomitant]
     Active Substance: UMECLIDINIUM BROMIDE
     Dosage: 62.5 MCG/INH 1 PUFF , QD
     Route: 055
  8. LEVOFLOXACIN ABZ [Concomitant]
     Dosage: 500 MG, QD
     Route: 048
     Dates: end: 20190114
  9. CLONAZEPAM AUDEN [Concomitant]
     Active Substance: CLONAZEPAM
     Indication: ANXIETY
     Dosage: 0.5 MG, TID (PRN ANXIETY)
     Route: 048

REACTIONS (2)
  - Headache [Unknown]
  - Insomnia [Unknown]

NARRATIVE: CASE EVENT DATE: 20190128
